FAERS Safety Report 8817929 (Version 1)
Quarter: 2012Q4

REPORT INFORMATION
  Report Type: 
  Country: MX (occurrence: MX)
  Receive Date: 20121004
  Receipt Date: 20121004
  Transmission Date: 20130627
  Serious: Yes (Other)
  Sender: FDA-Public Use
  Company Number: PHHY2012MX086868

PATIENT
  Age: 62 None
  Sex: Female

DRUGS (3)
  1. CO-DIOVAN [Suspect]
     Indication: HYPERTENSION
     Dosage: 1 DF (160/12.5mg) daily
     Dates: start: 20090904
  2. CO-DIOVAN [Suspect]
     Dosage: 0.5 DF (160/12.5mg) daily
     Dates: start: 20120813
  3. DIVITAR [Concomitant]
     Indication: HYPERTENSION
     Dosage: 1 DF, daily
     Dates: start: 200901

REACTIONS (5)
  - Pneumococcal infection [Unknown]
  - Productive cough [Unknown]
  - Sinusitis [Unknown]
  - Hypotension [Unknown]
  - Wrong technique in drug usage process [Unknown]
